FAERS Safety Report 23742013 (Version 1)
Quarter: 2024Q2

REPORT INFORMATION
  Report Type: Spontaneous
  Country: HR (occurrence: HR)
  Receive Date: 20240415
  Receipt Date: 20240415
  Transmission Date: 20240716
  Serious: Yes (Other)
  Sender: FDA-Public Use
  Company Number: None

PATIENT
  Age: 30 Year
  Sex: Male

DRUGS (3)
  1. CLONAZEPAM [Suspect]
     Active Substance: CLONAZEPAM
     Dosage: 17 TABLETS?DAILY DOSE: 34 MILLIGRAM
     Route: 048
     Dates: start: 202402, end: 202402
  2. OLANZAPINE [Suspect]
     Active Substance: OLANZAPINE
     Dosage: TOOK 10 TABLETS OLANZAPINE 10 MG?DAILY DOSE: 100 MILLIGRAM
     Route: 048
     Dates: start: 202402, end: 202402
  3. WELLBUTRIN XL [Suspect]
     Active Substance: BUPROPION HYDROCHLORIDE
     Dosage: 13 TBL BUPROPION 300 MG?DAILY DOSE: 3900 MILLIGRAM
     Route: 048
     Dates: start: 202402, end: 202402

REACTIONS (3)
  - Somnolence [Unknown]
  - Intentional overdose [Unknown]
  - Suicide attempt [Unknown]

NARRATIVE: CASE EVENT DATE: 20240201
